FAERS Safety Report 18066300 (Version 1)
Quarter: 2020Q3

REPORT INFORMATION
  Report Type: Spontaneous
  Country: US (occurrence: US)
  Receive Date: 20200724
  Receipt Date: 20200724
  Transmission Date: 20201103
  Serious: Yes (Death)
  Sender: FDA-Public Use
  Company Number: None

PATIENT
  Age: 78 Year
  Sex: Male
  Weight: 122.5 kg

DRUGS (21)
  1. NOREPINEPHRINE. [Concomitant]
     Active Substance: NOREPINEPHRINE
     Dates: start: 20200714, end: 20200719
  2. CEFEPIME [Concomitant]
     Active Substance: CEFEPIME HYDROCHLORIDE
     Dates: start: 20200713, end: 20200719
  3. SODIUM BICARBONATE INFUSION [Concomitant]
     Dates: start: 20200719, end: 20200719
  4. ALBUMIN 25% [Concomitant]
     Active Substance: ALBUMIN HUMAN
     Dates: start: 20200716, end: 20200717
  5. FAMOTIDINE. [Concomitant]
     Active Substance: FAMOTIDINE
     Dates: start: 20200713, end: 20200719
  6. FUROSEMIDE. [Concomitant]
     Active Substance: FUROSEMIDE
     Dates: start: 20200715, end: 20200715
  7. ENOXAPARIN TREATMENT DOSING [Concomitant]
     Dates: start: 20200713, end: 20200715
  8. ENOXAPARIN PPX DOSING [Concomitant]
     Dates: start: 20200710, end: 20200713
  9. VASOPRESSIN. [Concomitant]
     Active Substance: VASOPRESSIN
     Dates: start: 20200716, end: 20200719
  10. AZITHROMYCIN ANHYDROUS. [Concomitant]
     Active Substance: AZITHROMYCIN ANHYDROUS
     Dates: start: 20200710, end: 20200715
  11. EPINEPHRINE. [Concomitant]
     Active Substance: EPINEPHRINE
     Dates: start: 20200716, end: 20200719
  12. DEXAMETHASONE. [Concomitant]
     Active Substance: DEXAMETHASONE
     Dates: start: 20200710, end: 20200719
  13. PROPOFOL. [Concomitant]
     Active Substance: PROPOFOL
     Dates: start: 20200714, end: 20200719
  14. FENTANYL. [Concomitant]
     Active Substance: FENTANYL
     Dates: start: 20200714, end: 20200719
  15. TOCILIZUMAB. [Concomitant]
     Active Substance: TOCILIZUMAB
     Dates: start: 20200716, end: 20200716
  16. PHENYLEPHRINE [Concomitant]
     Active Substance: PHENYLEPHRINE HYDROCHLORIDE
     Dates: start: 20200716, end: 20200719
  17. VANCOMYCIN [Concomitant]
     Active Substance: VANCOMYCIN
     Dates: start: 20200711, end: 20200713
  18. REMDESIVIR. [Suspect]
     Active Substance: REMDESIVIR
     Indication: SARS-COV-2 TEST POSITIVE
     Route: 042
     Dates: start: 20200713, end: 20200715
  19. AMIODARONE [Concomitant]
     Active Substance: AMIODARONE
     Dates: start: 20200716, end: 20200719
  20. HEPARIN SQ [Concomitant]
     Dates: start: 20200715, end: 20200719
  21. INSULIN [Concomitant]
     Active Substance: INSULIN NOS
     Dates: start: 20200711, end: 20200719

REACTIONS (4)
  - Cardiac arrest [None]
  - Acute respiratory distress syndrome [None]
  - Hypoxia [None]
  - Acute kidney injury [None]

NARRATIVE: CASE EVENT DATE: 20200719
